FAERS Safety Report 15494632 (Version 11)
Quarter: 2024Q1

REPORT INFORMATION
  Report Type: Report from Study
  Country: CO (occurrence: CO)
  Receive Date: 20181012
  Receipt Date: 20240116
  Transmission Date: 20240410
  Serious: Yes (Other)
  Sender: FDA-Public Use
  Company Number: PHHY2018CO120848

PATIENT
  Sex: Female
  Weight: 74 kg

DRUGS (10)
  1. AFINITOR [Suspect]
     Active Substance: EVEROLIMUS
     Indication: Gastroenteropancreatic neuroendocrine tumour disease
     Dosage: 10 MG, QD
     Route: 048
     Dates: start: 20180904
  2. AFINITOR [Suspect]
     Active Substance: EVEROLIMUS
     Indication: Neuroendocrine tumour of the lung
     Dosage: 10 MG, QD
     Route: 048
     Dates: end: 202002
  3. AFINITOR [Suspect]
     Active Substance: EVEROLIMUS
     Dosage: 10 MG, QD (LAST DOSE: MAY)
     Route: 048
     Dates: start: 20180910, end: 202305
  4. SANDOSTATIN LAR DEPOT [Suspect]
     Active Substance: OCTREOTIDE ACETATE
     Indication: Gastroenteropancreatic neuroendocrine tumour disease
     Dosage: 30 MG, QMO
     Route: 030
     Dates: end: 201911
  5. SANDOSTATIN LAR DEPOT [Suspect]
     Active Substance: OCTREOTIDE ACETATE
  6. SANDOSTATIN LAR DEPOT [Suspect]
     Active Substance: OCTREOTIDE ACETATE
  7. LOSARTAN [Suspect]
     Active Substance: LOSARTAN
     Indication: Hypertension
     Dosage: 50 MG, Q12H
     Route: 048
  8. HYDROCHLOROTHIAZIDE [Suspect]
     Active Substance: HYDROCHLOROTHIAZIDE
     Indication: Hypertension
     Dosage: 20 MG, QD
     Route: 048
  9. SPIRONOLACTONE [Concomitant]
     Active Substance: SPIRONOLACTONE
     Indication: Hypertension
     Dosage: UNK UNK, Q12H
     Route: 048
  10. ACETAMINOPHEN [Concomitant]
     Active Substance: ACETAMINOPHEN
     Indication: Spinal pain
     Dosage: 500 MG, Q12H
     Route: 065

REACTIONS (12)
  - Tumour pain [Unknown]
  - Neoplasm progression [Unknown]
  - Diabetes mellitus [Unknown]
  - Influenza [Not Recovered/Not Resolved]
  - Malaise [Unknown]
  - Dizziness [Unknown]
  - Gastritis [Unknown]
  - Blood glucose increased [Recovered/Resolved]
  - Blood cholesterol increased [Recovered/Resolved]
  - Renal disorder [Recovering/Resolving]
  - Incorrect dose administered [Unknown]
  - Product supply issue [Unknown]
